FAERS Safety Report 10256373 (Version 1)
Quarter: 2014Q2

REPORT INFORMATION
  Report Type: Not Available
  Country: NL (occurrence: NL)
  Receive Date: 20140624
  Receipt Date: 20140624
  Transmission Date: 20141212
  Serious: Yes (Other)
  Sender: FDA-Public Use
  Company Number: NL-NAPPMUNDI-GBR-2014-0018918

PATIENT
  Age: 35 Year
  Sex: Female

DRUGS (5)
  1. OXYNORM DRANK [Suspect]
     Dosage: 5 MG, Q6H, PRN
     Route: 048
     Dates: start: 2013
  2. CYMBALTA [Interacting]
     Indication: DEPRESSION
     Dosage: 30 MG, DAILY
     Route: 065
     Dates: start: 20140521, end: 20140525
  3. CETIRIZINE [Concomitant]
     Dosage: 10 MG, DAILY
     Dates: start: 200603
  4. ZOLPIDEM [Concomitant]
     Dosage: 10 MG, PRN
     Dates: start: 2013
  5. DIAZEPAM [Concomitant]
     Dosage: 5 UNK, UNK
     Dates: start: 2006

REACTIONS (2)
  - Serotonin syndrome [Recovering/Resolving]
  - Drug interaction [Recovering/Resolving]
